FAERS Safety Report 10061958 (Version 2)
Quarter: 2014Q2

REPORT INFORMATION
  Report Type: Report from Study
  Country: NO (occurrence: NO)
  Receive Date: 20140407
  Receipt Date: 20140409
  Transmission Date: 20141212
  Serious: Yes (Death)
  Sender: FDA-Public Use
  Company Number: NO-ASTELLAS-2014EU003703

PATIENT
  Age: 69 Year
  Sex: Male
  Weight: 80 kg

DRUGS (8)
  1. TACROLIMUS MR4 CAPSULES [Suspect]
     Indication: RENAL TRANSPLANT
     Dosage: 2 MG, UID/QD
     Route: 048
     Dates: start: 20121110
  2. WARFARIN [Suspect]
     Indication: HEART VALVE OPERATION
     Dosage: 7.5 MG, UID/QD
     Route: 048
     Dates: start: 2010
  3. PREDNISOLON                        /00016201/ [Suspect]
     Indication: RENAL TRANSPLANT
     Dosage: 5 MG, UID/QD
     Route: 048
     Dates: start: 20121110
  4. MYCOPHENOLATE MOFETIL [Concomitant]
     Indication: RENAL TRANSPLANT
     Dosage: 750 MG, BID
     Route: 048
     Dates: start: 20121110
  5. FLUVASTATIN [Concomitant]
     Indication: RENAL TRANSPLANT
     Dosage: 80 MG, UID/QD
     Route: 048
     Dates: start: 20121110
  6. PANTOPRAZOL [Concomitant]
     Indication: RENAL TRANSPLANT
     Dosage: 40 MG, UID/QD
     Route: 048
     Dates: start: 20121110
  7. LERCANIDIPINE [Concomitant]
     Indication: HYPERTENSION
     Dosage: 20 MG, UID/QD
     Route: 048
     Dates: start: 2007
  8. CARVEDILOL [Concomitant]
     Indication: HYPERTENSION
     Dosage: 25 MG, BID
     Route: 048
     Dates: start: 2007

REACTIONS (1)
  - Sudden cardiac death [Fatal]
